FAERS Safety Report 6045328-7 (Version None)
Quarter: 2009Q1

REPORT INFORMATION
  Report Type: 
  Country: None (occurrence: None)
  Receive Date: 20090121
  Receipt Date: 20090115
  Transmission Date: 20090719
  Serious: Yes (Other)
  Sender: FDA-Public Use
  Company Number: PHHY2008DE33503

PATIENT
  Sex: Male

DRUGS (1)
  1. VOLTAREN [Suspect]
     Indication: SHOULDER OPERATION
     Dosage: ONCE DAILY(EVENING)
     Route: 048

REACTIONS (5)
  - DYSPNOEA [None]
  - MUSCLE SPASMS [None]
  - NASAL OEDEMA [None]
  - PAIN IN EXTREMITY [None]
  - POOR QUALITY SLEEP [None]
